FAERS Safety Report 21312302 (Version 1)
Quarter: 2022Q3

REPORT INFORMATION
  Report Type: Spontaneous
  Country: US (occurrence: None)
  Receive Date: 20220909
  Receipt Date: 20220909
  Transmission Date: 20221027
  Serious: No
  Sender: FDA-Public Use
  Company Number: US-ARIS GLOBAL-202205-0964

PATIENT
  Sex: Female
  Weight: 53 kg

DRUGS (7)
  1. OXERVATE [Suspect]
     Active Substance: CENEGERMIN-BKBJ
     Indication: Neurotrophic keratopathy
     Route: 047
     Dates: start: 20190918, end: 20191125
  2. OXERVATE [Suspect]
     Active Substance: CENEGERMIN-BKBJ
     Route: 047
     Dates: start: 20220517
  3. LOESTRIN NOS [Concomitant]
     Active Substance: ETHINYL ESTRADIOL\NORETHINDRONE ACETATE
     Dosage: 1.5 - 0.03 MG
  4. SUCRAID [Concomitant]
     Active Substance: SACROSIDASE
     Dosage: 8500/ ML
  5. CEQUA [Concomitant]
     Active Substance: CYCLOSPORINE
  6. DUPIXENT [Concomitant]
     Active Substance: DUPILUMAB
     Dosage: SYRINGE 100 MG/0.67
  7. LOTEMAX [Concomitant]
     Active Substance: LOTEPREDNOL ETABONATE

REACTIONS (1)
  - Wrong technique in product usage process [Unknown]
